FAERS Safety Report 5923744-9 (Version None)
Quarter: 2008Q3

REPORT INFORMATION
  Report Type: 
  Country: None (occurrence: None)
  Receive Date: 20080909
  Receipt Date: 20071127
  Transmission Date: 20090109
  Serious: Yes (Hospitalization)
  Sender: FDA-Public Use
  Company Number: 163-20785-07111507

PATIENT
  Age: 56 Year
  Sex: Male
  Weight: 72.5755 kg

DRUGS (12)
  1. THALOMID [Suspect]
     Indication: MULTIPLE MYELOMA
     Dosage: 200 MG, 1 IN 1 D, ORAL : 100 MG, 1 IN 1 D, ORAL
     Route: 048
     Dates: end: 20071021
  2. THALOMID [Suspect]
     Indication: MULTIPLE MYELOMA
     Dosage: 200 MG, 1 IN 1 D, ORAL : 100 MG, 1 IN 1 D, ORAL
     Route: 048
     Dates: start: 20041207
  3. DEXAMETHASONE TAB [Suspect]
     Indication: MULTIPLE MYELOMA
     Dosage: 40 MG : 20 MG, DAYS 1-4 AND 8-11 Q 4 WEEKS
     Dates: end: 20071018
  4. DEXAMETHASONE TAB [Suspect]
     Indication: MULTIPLE MYELOMA
     Dosage: 40 MG : 20 MG, DAYS 1-4 AND 8-11 Q 4 WEEKS
     Dates: start: 20041207
  5. VELCADE [Suspect]
     Indication: MULTIPLE MYELOMA
     Dosage: 1MG/M2
     Dates: end: 20070416
  6. VELCADE [Suspect]
     Indication: MULTIPLE MYELOMA
     Dosage: 1MG/M2
     Dates: start: 20041204
  7. ZANTAC 150 [Concomitant]
  8. FLUCONAZOLE [Concomitant]
  9. MONOPRIL [Concomitant]
  10. GLUCOVANCE [Concomitant]
  11. OXYCODONE HCL (OXYCODONE HYDROCHLORIDE) [Concomitant]
  12. ACYCLOVIR [Concomitant]

REACTIONS (1)
  - HYPERGLYCAEMIA [None]
